FAERS Safety Report 12841726 (Version 1)
Quarter: 2016Q4

REPORT INFORMATION
  Report Type: Not Available
  Country: US (occurrence: US)
  Receive Date: 20161012
  Receipt Date: 20161012
  Transmission Date: 20170207
  Serious: No
  Sender: FDA-Public Use
  Company Number: US-ECOLAB-2015-US-001388

PATIENT
  Age: 96 Year
  Sex: Female

DRUGS (1)
  1. SCRUB-STAT [Suspect]
     Active Substance: CHLORHEXIDINE GLUCONATE
     Dosage: 1 TABLESPOON ONCE
     Route: 048
     Dates: start: 20150910

REACTIONS (3)
  - Throat irritation [Not Recovered/Not Resolved]
  - Accidental exposure to product [Unknown]
  - Accidental exposure to product [None]

NARRATIVE: CASE EVENT DATE: 20150910
